FAERS Safety Report 10574571 (Version 2)
Quarter: 2014Q4

REPORT INFORMATION
  Report Type: Spontaneous
  Country: US (occurrence: US)
  Receive Date: 20141110
  Receipt Date: 20141112
  Transmission Date: 20150529
  Serious: No
  Sender: FDA-Public Use
  Company Number: US-009507513-1410USA014354

PATIENT
  Age: 27 Year
  Sex: Female
  Weight: 81.63 kg

DRUGS (1)
  1. NEXPLANON [Suspect]
     Active Substance: ETONOGESTREL
     Indication: CONTRACEPTION
     Dosage: 1 IMPLANT /3 YEARS. THERAPY ROUTE: LEFT ARM
     Route: 059
     Dates: start: 20140924

REACTIONS (2)
  - Menstruation irregular [Unknown]
  - Menorrhagia [Unknown]

NARRATIVE: CASE EVENT DATE: 2014
